FAERS Safety Report 18339295 (Version 5)
Quarter: 2021Q2

REPORT INFORMATION
  Report Type: Spontaneous
  Country: US (occurrence: US)
  Receive Date: 20201002
  Receipt Date: 20210419
  Transmission Date: 20210717
  Serious: No
  Sender: FDA-Public Use
  Company Number: US-PFIZER INC-2020338005

PATIENT
  Age: 56 Year
  Sex: Female

DRUGS (2)
  1. METHOTREXATE. [Concomitant]
     Active Substance: METHOTREXATE
     Dosage: UNK
  2. XELJANZ XR [Suspect]
     Active Substance: TOFACITINIB CITRATE
     Indication: RHEUMATOID ARTHRITIS
     Dosage: 11 MG, 1X/DAY
     Route: 048
     Dates: start: 20200731

REACTIONS (6)
  - Alopecia [Unknown]
  - Fatigue [Unknown]
  - Arthralgia [Unknown]
  - Depression [Unknown]
  - Feeling abnormal [Unknown]
  - Product dose omission in error [Unknown]

NARRATIVE: CASE EVENT DATE: 2020
